FAERS Safety Report 8913512 (Version 1)
Quarter: 2012Q4

REPORT INFORMATION
  Report Type: 
  Country: CN (occurrence: CN)
  Receive Date: 20121119
  Receipt Date: 20121119
  Transmission Date: 20130627
  Serious: Yes (Hospitalization)
  Sender: FDA-Public Use
  Company Number: CN-JNJFOC-20121104562

PATIENT
  Age: 36 Year
  Sex: Female

DRUGS (6)
  1. RISPERDAL [Suspect]
     Indication: SCHIZOPHRENIA
     Route: 048
     Dates: start: 201206
  2. RISPERDAL [Suspect]
     Indication: SCHIZOPHRENIA
     Route: 048
     Dates: start: 201206
  3. RISPERDAL [Suspect]
     Indication: SCHIZOPHRENIA
     Dosage: 1.5 mg approximately 2mg
     Route: 048
     Dates: start: 2007
  4. RISPERDAL [Suspect]
     Indication: SCHIZOPHRENIA
     Route: 048
     Dates: start: 201207
  5. RISPERDAL [Suspect]
     Indication: SCHIZOPHRENIA
     Dosage: 1.5mg~2mg per day,
     Route: 048
     Dates: end: 201203
  6. QUETIAPINE [Concomitant]
     Indication: SCHIZOPHRENIA
     Route: 048
     Dates: start: 201203, end: 201204

REACTIONS (4)
  - Hallucination, synaesthetic [Not Recovered/Not Resolved]
  - Menstrual disorder [Not Recovered/Not Resolved]
  - Tic [Not Recovered/Not Resolved]
  - Hypokinesia [Not Recovered/Not Resolved]
